FAERS Safety Report 9152873 (Version 1)
Quarter: 2013Q1

REPORT INFORMATION
  Report Type: Spontaneous
  Country: PL (occurrence: PL)
  Receive Date: 20130309
  Receipt Date: 20130309
  Transmission Date: 20140127
  Serious: Yes (Hospitalization, Other)
  Sender: FDA-Public Use
  Company Number: PL-UCBSA-079944

PATIENT
  Age: 19 Year
  Sex: Male

DRUGS (6)
  1. KEPPRA [Suspect]
  2. DEPAKINE [Suspect]
  3. TOPAMAX [Suspect]
  4. TRILEPTAL [Concomitant]
  5. LAMITRIL [Concomitant]
  6. LAMITRIL [Concomitant]
     Dates: start: 201206

REACTIONS (2)
  - Convulsion [Recovering/Resolving]
  - Mental disorder [Unknown]
